FAERS Safety Report 14987835 (Version 1)
Quarter: 2018Q2

REPORT INFORMATION
  Report Type: Spontaneous
  Country: US (occurrence: US)
  Receive Date: 20180519
  Receipt Date: 20180519
  Transmission Date: 20180711
  Serious: No
  Sender: FDA-Public Use
  Company Number: None

PATIENT
  Age: 39 Year
  Sex: Female
  Weight: 57.15 kg

DRUGS (11)
  1. RIZATRIPTAN. [Concomitant]
     Active Substance: RIZATRIPTAN
  2. MELATONIN [Concomitant]
     Active Substance: MELATONIN
  3. BUPROPION 75MG TABLETS [Suspect]
     Active Substance: BUPROPION HYDROCHLORIDE
     Indication: DEPRESSION
     Dosage: ?          QUANTITY:1 TABLET(S);?
     Route: 048
     Dates: start: 20180424, end: 20180511
  4. BUPROPION 75MG TABLETS [Suspect]
     Active Substance: BUPROPION HYDROCHLORIDE
     Indication: ANXIETY
     Dosage: ?          QUANTITY:1 TABLET(S);?
     Route: 048
     Dates: start: 20180424, end: 20180511
  5. XANAX [Concomitant]
     Active Substance: ALPRAZOLAM
  6. CYMBALTA [Concomitant]
     Active Substance: DULOXETINE HYDROCHLORIDE
  7. WOMEN^S ONE A DAY VITAMIN [Concomitant]
  8. TOPIRAMATE. [Concomitant]
     Active Substance: TOPIRAMATE
  9. ZOFRAN [Concomitant]
     Active Substance: ONDANSETRON HYDROCHLORIDE
  10. VICODIN [Concomitant]
     Active Substance: ACETAMINOPHEN\HYDROCODONE BITARTRATE
  11. ESTROVEN [Concomitant]
     Active Substance: DIETARY SUPPLEMENT

REACTIONS (4)
  - Migraine [None]
  - Nausea [None]
  - Vomiting [None]
  - Influenza like illness [None]

NARRATIVE: CASE EVENT DATE: 20180424
